FAERS Safety Report 17424318 (Version 1)
Quarter: 2020Q1

REPORT INFORMATION
  Report Type: Spontaneous
  Country: US (occurrence: US)
  Receive Date: 20200217
  Receipt Date: 20200217
  Transmission Date: 20200409
  Serious: No
  Sender: FDA-Public Use
  Company Number: US-ASTRAZENECA-2020SE20619

PATIENT

DRUGS (2)
  1. OMEPRAZOLE. [Suspect]
     Active Substance: OMEPRAZOLE
     Route: 048
  2. XELJANZ XR [Suspect]
     Active Substance: TOFACITINIB CITRATE
     Indication: RHEUMATOID ARTHRITIS
     Route: 048
     Dates: start: 201804

REACTIONS (5)
  - Nausea [Not Recovered/Not Resolved]
  - Nodule [Recovering/Resolving]
  - Vomiting [Not Recovered/Not Resolved]
  - Drug ineffective [Unknown]
  - Tooth disorder [Unknown]
